FAERS Safety Report 5382195-9 (Version None)
Quarter: 2007Q3

REPORT INFORMATION
  Report Type: 
  Country: None (occurrence: None)
  Receive Date: 20070709
  Receipt Date: 20070628
  Transmission Date: 20080115
  Serious: Yes (Other)
  Sender: FDA-Public Use
  Company Number: GB-JNJFOC-20070606589

PATIENT
  Age: 23 Year
  Sex: Male

DRUGS (1)
  1. MINOCYLINE [Suspect]
     Indication: ACNE
     Route: 065

REACTIONS (1)
  - ARTHRITIS [None]
